FAERS Safety Report 7989081-6 (Version None)
Quarter: 2011Q4

REPORT INFORMATION
  Report Type: 
  Country: None (occurrence: None)
  Receive Date: 20111219
  Receipt Date: 20111209
  Transmission Date: 20120403
  Serious: Yes (Other)
  Sender: FDA-Public Use
  Company Number: US-US-EMD SERONO, INC.-7093721

PATIENT
  Sex: Female

DRUGS (1)
  1. REBIF [Suspect]
     Indication: PRODUCT USED FOR UNKNOWN INDICATION
     Route: 058
     Dates: start: 20080502, end: 20111031

REACTIONS (4)
  - VULVOVAGINAL MYCOTIC INFECTION [None]
  - BARTHOLIN'S CYST [None]
  - VAGINITIS BACTERIAL [None]
  - WHITE BLOOD CELL COUNT DECREASED [None]
